FAERS Safety Report 6341012-0 (Version None)
Quarter: 2009Q3

REPORT INFORMATION
  Report Type: 
  Country: None (occurrence: None)
  Receive Date: 20090904
  Receipt Date: 20090827
  Transmission Date: 20100115
  Serious: Yes (Other)
  Sender: FDA-Public Use
  Company Number: A0805253A

PATIENT
  Age: 1 Day
  Sex: Male
  Weight: 4.1 kg

DRUGS (4)
  1. LAMOTRIGINE [Suspect]
     Indication: BIPOLAR DISORDER
     Dosage: 100MG PER DAY
     Dates: start: 20090121
  2. LAMOTRIGINE [Suspect]
     Dosage: 50MG PER DAY
     Dates: start: 20090115, end: 20090120
  3. LAMOTRIGINE [Suspect]
     Dosage: 300MG PER DAY
     Dates: end: 20090110
  4. BUPROPION HCL [Concomitant]
     Indication: DRUG USE FOR UNKNOWN INDICATION
     Dosage: 150MG PER DAY

REACTIONS (1)
  - NEONATAL DISORDER [None]
